FAERS Safety Report 16018227 (Version 1)
Quarter: 2019Q1

REPORT INFORMATION
  Report Type: Spontaneous
  Country: US (occurrence: US)
  Receive Date: 20190201
  Receipt Date: 20190201
  Transmission Date: 20190418
  Serious: Yes (Disabling)
  Sender: FDA-Public Use
  Company Number: None

PATIENT
  Age: 67 Year
  Sex: Female
  Weight: 73.48 kg

DRUGS (14)
  1. LYRICA [Suspect]
     Active Substance: PREGABALIN
     Indication: NEURALGIA
     Dosage: ?          QUANTITY:1 DF DOSAGE FORM;?
     Route: 048
     Dates: start: 20171223, end: 20190123
  2. METFORMIN [Concomitant]
     Active Substance: METFORMIN HYDROCHLORIDE
  3. VITAMIN D3 [Concomitant]
     Active Substance: CHOLECALCIFEROL
  4. TYLENOL [Concomitant]
     Active Substance: ACETAMINOPHEN
  5. ATORVASTATIN [Concomitant]
     Active Substance: ATORVASTATIN
  6. OMEPRAZOLE. [Concomitant]
     Active Substance: OMEPRAZOLE
  7. VITAMIN B12 [Concomitant]
     Active Substance: CYANOCOBALAMIN
  8. FOLIC ACID. [Concomitant]
     Active Substance: FOLIC ACID
  9. CETIRIZINE [Concomitant]
     Active Substance: CETIRIZINE HYDROCHLORIDE
  10. BETAMETHASONE. [Concomitant]
     Active Substance: BETAMETHASONE
  11. NYSTATIN. [Concomitant]
     Active Substance: NYSTATIN
  12. POTASSIUM [Concomitant]
     Active Substance: POTASSIUM
  13. DIPROP [Concomitant]
  14. ASPIRIN. [Concomitant]
     Active Substance: ASPIRIN

REACTIONS (5)
  - Swelling face [None]
  - Irritability [None]
  - Alopecia [None]
  - Swelling [None]
  - Vision blurred [None]

NARRATIVE: CASE EVENT DATE: 20181213
